FAERS Safety Report 7898043-9 (Version None)
Quarter: 2011Q4

REPORT INFORMATION
  Report Type: 
  Country: None (occurrence: None)
  Receive Date: 20111107
  Receipt Date: 20111107
  Transmission Date: 20120403
  Serious: No
  Sender: FDA-Public Use
  Company Number: None

PATIENT
  Age: 50 Year
  Sex: Female
  Weight: 63.502 kg

DRUGS (1)
  1. FLUCONAZOLE [Suspect]
     Indication: VULVOVAGINAL MYCOTIC INFECTION
     Dosage: 150MG
     Route: 048
     Dates: start: 20110504, end: 20111104

REACTIONS (7)
  - RASH ERYTHEMATOUS [None]
  - STRESS [None]
  - FATIGUE [None]
  - FEELING HOT [None]
  - SWELLING FACE [None]
  - NECK PAIN [None]
  - RASH PRURITIC [None]
